FAERS Safety Report 12196751 (Version 4)
Quarter: 2016Q2

REPORT INFORMATION
  Report Type: Spontaneous
  Country: US (occurrence: US)
  Receive Date: 20160321
  Receipt Date: 20160425
  Transmission Date: 20160815
  Serious: Yes (Hospitalization)
  Sender: FDA-Public Use
  Company Number: US-ACTELION-A-NJ2016-133129

PATIENT
  Age: 73 Year
  Sex: Male

DRUGS (1)
  1. VELETRI [Suspect]
     Active Substance: EPOPROSTENOL
     Indication: PULMONARY HYPERTENSION
     Dosage: 9 NG/KG, PER MIN
     Route: 042
     Dates: start: 20160225

REACTIONS (11)
  - Vomiting [Unknown]
  - Diarrhoea [Unknown]
  - Pain in jaw [Unknown]
  - Respiratory distress [Unknown]
  - Nausea [Unknown]
  - Pain in extremity [Unknown]
  - Pallor [Unknown]
  - Cyanosis [Unknown]
  - Retching [Unknown]
  - Gout [Unknown]
  - Pulmonary embolism [Unknown]
